FAERS Safety Report 6803445-5 (Version None)
Quarter: 2010Q2

REPORT INFORMATION
  Report Type: 
  Country: None (occurrence: None)
  Receive Date: 20100628
  Receipt Date: 20100618
  Transmission Date: 20101027
  Serious: Yes (Other)
  Sender: FDA-Public Use
  Company Number: US-JNJFOC-20100606148

PATIENT
  Sex: Female

DRUGS (2)
  1. LEVAQUIN [Suspect]
     Indication: EAR INFECTION
     Route: 048
  2. LEVAQUIN [Suspect]
     Indication: VIRAL INFECTION
     Route: 048

REACTIONS (2)
  - ADVERSE EVENT [None]
  - SENSORY LOSS [None]
